FAERS Safety Report 12985300 (Version 1)
Quarter: 2016Q4

REPORT INFORMATION
  Report Type: Spontaneous
  Country: NL (occurrence: NL)
  Receive Date: 20161130
  Receipt Date: 20161130
  Transmission Date: 20170207
  Serious: Yes (Other)
  Sender: FDA-Public Use
  Company Number: NL-009507513-1611NLD010012

PATIENT
  Age: 48 Year
  Sex: Male
  Weight: 75 kg

DRUGS (2)
  1. LOSARTAN POTASSIUM. [Suspect]
     Active Substance: LOSARTAN POTASSIUM
     Indication: HYPERTENSION
     Dosage: 1 TIME PER DAY 1 PIECE(S)
     Route: 048
     Dates: start: 2010
  2. EPLERENONE. [Interacting]
     Active Substance: EPLERENONE
     Indication: HYPERALDOSTERONISM
     Dosage: 1 TIME PER DAY 1 PIECE(S)
     Route: 048
     Dates: start: 2011

REACTIONS (2)
  - Autoimmune hepatitis [Not Recovered/Not Resolved]
  - Drug interaction [Not Recovered/Not Resolved]

NARRATIVE: CASE EVENT DATE: 20160901
